FAERS Safety Report 8418882-5 (Version None)
Quarter: 2012Q2

REPORT INFORMATION
  Report Type: 
  Country: None (occurrence: None)
  Receive Date: 20120530
  Receipt Date: 20120517
  Transmission Date: 20120825
  Serious: Yes (Hospitalization)
  Sender: FDA-Public Use
  Company Number: 2012SP026825

PATIENT
  Age: 22 Year
  Sex: Female
  Weight: 55 kg

DRUGS (1)
  1. CERAZETTE (DESOGESTREL) [Suspect]
     Indication: CONTRACEPTION
     Dosage: ;QD;PO
     Route: 048
     Dates: start: 20120228

REACTIONS (9)
  - ABDOMINAL DISTENSION [None]
  - PNEUMONIA [None]
  - AMENORRHOEA [None]
  - WEIGHT DECREASED [None]
  - DRUG DOSE OMISSION [None]
  - MEDICATION ERROR [None]
  - UNEVALUABLE EVENT [None]
  - ABDOMINAL PAIN [None]
  - PRURITUS [None]
